FAERS Safety Report 9419598 (Version 2)
Quarter: 2013Q3

REPORT INFORMATION
  Report Type: Spontaneous
  Country: BE (occurrence: BE)
  Receive Date: 20130725
  Receipt Date: 20130801
  Transmission Date: 20140515
  Serious: No
  Sender: FDA-Public Use
  Company Number: BE-PFIZER INC-2013212724

PATIENT
  Age: 36 Year
  Sex: Female
  Weight: 62 kg

DRUGS (2)
  1. DIFLUCAN [Suspect]
     Indication: ONYCHOMYCOSIS
     Dosage: 200 MG, WEEKLY
     Route: 048
     Dates: start: 20130529, end: 20130619
  2. MIRENA [Concomitant]
     Dosage: UNK
     Route: 005
     Dates: start: 20091224

REACTIONS (3)
  - Arthralgia [Recovering/Resolving]
  - Muscular weakness [Recovering/Resolving]
  - Gait disturbance [Recovering/Resolving]
